FAERS Safety Report 12173429 (Version 3)
Quarter: 2016Q1

REPORT INFORMATION
  Report Type: Spontaneous
  Country: US (occurrence: US)
  Receive Date: 20160311
  Receipt Date: 20160317
  Transmission Date: 20160526
  Serious: No
  Sender: FDA-Public Use
  Company Number: US-GALDERMA-US16000199

PATIENT
  Sex: Female

DRUGS (1)
  1. TRI-LUMA [Suspect]
     Active Substance: FLUOCINOLONE ACETONIDE\HYDROQUINONE\TRETINOIN
     Indication: SKIN HYPERPIGMENTATION
     Route: 061

REACTIONS (5)
  - Rash macular [Not Recovered/Not Resolved]
  - Erythema [Not Recovered/Not Resolved]
  - Condition aggravated [Not Recovered/Not Resolved]
  - Skin exfoliation [Not Recovered/Not Resolved]
  - Telangiectasia [Not Recovered/Not Resolved]

NARRATIVE: CASE EVENT DATE: 201601
